FAERS Safety Report 7802132-4 (Version None)
Quarter: 2011Q4

REPORT INFORMATION
  Report Type: 
  Country: None (occurrence: None)
  Receive Date: 20111007
  Receipt Date: 20111004
  Transmission Date: 20120403
  Serious: Yes (Other)
  Sender: FDA-Public Use
  Company Number: NO-PFIZER INC-2011236091

PATIENT
  Age: 41 Year
  Sex: Male

DRUGS (1)
  1. LYRICA [Suspect]
     Indication: NEURALGIA
     Dosage: A NORMAL STEP UP PROCEDURE TO 300MG
     Route: 048

REACTIONS (2)
  - MUSCLE TWITCHING [None]
  - VISUAL FIELD DEFECT [None]
